FAERS Safety Report 7026933-8 (Version None)
Quarter: 2010Q4

REPORT INFORMATION
  Report Type: 
  Country: None (occurrence: None)
  Receive Date: 20101004
  Receipt Date: 20100923
  Transmission Date: 20110411
  Serious: Yes (Hospitalization)
  Sender: FDA-Public Use
  Company Number: B0676692A

PATIENT
  Age: 79 Year
  Sex: Male
  Weight: 80 kg

DRUGS (3)
  1. ARIXTRA [Suspect]
     Indication: PRODUCT USED FOR UNKNOWN INDICATION
     Route: 058
     Dates: start: 20100331, end: 20100923
  2. PREVISCAN [Suspect]
     Route: 048
     Dates: start: 20100809, end: 20100830
  3. KARDEGIC [Concomitant]
     Route: 065

REACTIONS (4)
  - HYPERTONIA [None]
  - OFF LABEL USE [None]
  - POST PROCEDURAL HAEMORRHAGE [None]
  - TRAUMATIC HAEMATOMA [None]
